FAERS Safety Report 6443500-5 (Version None)
Quarter: 2009Q4

REPORT INFORMATION
  Report Type: 
  Country: None (occurrence: None)
  Receive Date: 20091113
  Receipt Date: 20091104
  Transmission Date: 20100525
  Serious: Yes (Other)
  Sender: FDA-Public Use
  Company Number: 426215

PATIENT
  Age: 62 Year
  Sex: Male

DRUGS (3)
  1. CARBOPLATIN [Suspect]
     Indication: SQUAMOUS CELL CARCINOMA
  2. PACLITAXEL [Suspect]
     Indication: SQUAMOUS CELL CARCINOMA
  3. (THERAPEUTIC RADIOPHARMACEUTICALS) [Suspect]
     Indication: SQUAMOUS CELL CARCINOMA

REACTIONS (1)
  - ACUTE MYELOID LEUKAEMIA [None]
